FAERS Safety Report 7491981-0 (Version None)
Quarter: 2011Q2

REPORT INFORMATION
  Report Type: 
  Country: None (occurrence: None)
  Receive Date: 20110519
  Receipt Date: 20110505
  Transmission Date: 20111010
  Serious: Yes (Other)
  Sender: FDA-Public Use
  Company Number: CA-JNJFOC-20110503856

PATIENT
  Sex: Male
  Weight: 109 kg

DRUGS (8)
  1. REMICADE [Suspect]
     Route: 042
     Dates: start: 20061110
  2. VERPAMIL HCL [Concomitant]
  3. NEXIUM [Concomitant]
     Route: 048
  4. REMICADE [Suspect]
     Indication: RHEUMATOID ARTHRITIS
     Route: 042
  5. REMICADE [Suspect]
     Dosage: 39TH INFUSION
     Route: 042
     Dates: start: 20110505
  6. DIDROCAL [Concomitant]
     Route: 048
  7. METHOTREXATE [Concomitant]
     Route: 030
  8. PREDNISONE [Concomitant]
     Route: 048

REACTIONS (3)
  - PERFORMANCE STATUS DECREASED [None]
  - DYSPNOEA [None]
  - WHEEZING [None]
